FAERS Safety Report 24747850 (Version 2)
Quarter: 2024Q4

REPORT INFORMATION
  Report Type: Spontaneous
  Country: JP (occurrence: JP)
  Receive Date: 20241218
  Receipt Date: 20241226
  Transmission Date: 20250115
  Serious: Yes (Death, Other)
  Sender: TEVA
  Company Number: JP-TEVA-VS-3275279

PATIENT
  Age: 84 Year
  Sex: Male

DRUGS (6)
  1. LANSOPRAZOLE [Suspect]
     Active Substance: LANSOPRAZOLE
     Indication: Upper gastrointestinal haemorrhage
     Dosage: DOSAGE IS UNKNOWN
     Route: 042
     Dates: start: 20240923, end: 20241122
  2. AMPICILLIN SODIUM\SULBACTAM SODIUM [Concomitant]
     Active Substance: AMPICILLIN SODIUM\SULBACTAM SODIUM
     Indication: Product used for unknown indication
     Dosage: DOSAGE IS UNKNOWN
     Route: 065
  3. SOLDEM 3A [Concomitant]
     Active Substance: CARBOHYDRATES\POTASSIUM CHLORIDE\SODIUM CHLORIDE\SODIUM LACTATE
     Indication: Product used for unknown indication
     Dosage: DOSAGE IS UNKNOWN
     Route: 065
  4. CYANOCOBALAMIN\PYRIDOXINE HYDROCHLORIDE\THIAMINE [Concomitant]
     Active Substance: CYANOCOBALAMIN\PYRIDOXINE HYDROCHLORIDE\THIAMINE
     Indication: Product used for unknown indication
     Dosage: DOSAGE IS UNKNOWN
     Route: 065
  5. Elneopa 1 [Concomitant]
     Indication: Product used for unknown indication
     Dosage: DOSAGE IS UNKNOWN
     Route: 065
  6. NICARDIPINE [Concomitant]
     Active Substance: NICARDIPINE
     Indication: Product used for unknown indication
     Dosage: DOSAGE IS UNKNOWN
     Route: 065

REACTIONS (3)
  - Stevens-Johnson syndrome [Fatal]
  - Product use in unapproved indication [Unknown]
  - Haemorrhage [Fatal]

NARRATIVE: CASE EVENT DATE: 20240101
